FAERS Safety Report 7490932-2 (Version None)
Quarter: 2011Q2

REPORT INFORMATION
  Report Type: 
  Country: None (occurrence: None)
  Receive Date: 20110519
  Receipt Date: 20110516
  Transmission Date: 20111010
  Serious: No
  Sender: FDA-Public Use
  Company Number: US-BAYER-2011-042453

PATIENT
  Sex: Female

DRUGS (3)
  1. YAZ [Suspect]
     Route: 048
  2. DROSPIRENONE AND ETHINYL ESTRADIOL [Suspect]
     Route: 048
  3. YASMIN [Suspect]
     Route: 048

REACTIONS (2)
  - INJURY [None]
  - PAIN [None]
